FAERS Safety Report 14860419 (Version 1)
Quarter: 2018Q2

REPORT INFORMATION
  Report Type: Spontaneous
  Country: US (occurrence: US)
  Receive Date: 20180421
  Receipt Date: 20180421
  Transmission Date: 20180711
  Serious: Yes (Disabling)
  Sender: FDA-Public Use
  Company Number: None

PATIENT
  Age: 62 Year
  Sex: Female
  Weight: 46.8 kg

DRUGS (2)
  1. HYDROMORPHONE [Concomitant]
     Active Substance: HYDROMORPHONE
  2. LORAZEPAM. [Suspect]
     Active Substance: LORAZEPAM
     Indication: ANXIETY
     Dosage: ?          QUANTITY:1 TABLET(S);?
     Route: 048
     Dates: start: 20011222, end: 20170525

REACTIONS (21)
  - Proctalgia [None]
  - Fatigue [None]
  - Suicidal ideation [None]
  - Fear [None]
  - Photophobia [None]
  - Akathisia [None]
  - Unevaluable event [None]
  - Tremor [None]
  - Derealisation [None]
  - Tinnitus [None]
  - Pain [None]
  - Cognitive disorder [None]
  - Loss of personal independence in daily activities [None]
  - Anger [None]
  - Confusional state [None]
  - Social avoidant behaviour [None]
  - Poor quality sleep [None]
  - Pain in extremity [None]
  - Dysstasia [None]
  - Abnormal dreams [None]
  - Hyperacusis [None]

NARRATIVE: CASE EVENT DATE: 20170415
